FAERS Safety Report 16784282 (Version 1)
Quarter: 2019Q3

REPORT INFORMATION
  Report Type: Spontaneous
  Country: US (occurrence: US)
  Receive Date: 20190909
  Receipt Date: 20190909
  Transmission Date: 20191005
  Serious: No
  Sender: FDA-Public Use
  Company Number: US-JNJFOC-20190830485

PATIENT
  Sex: Female

DRUGS (2)
  1. IRON [Concomitant]
     Active Substance: IRON
  2. WOMENS ROGAINE [Suspect]
     Active Substance: MINOXIDIL
     Indication: ALOPECIA
     Dosage: UNKNOWN
     Route: 061

REACTIONS (1)
  - Drug ineffective [Unknown]
